FAERS Safety Report 11212694 (Version 1)
Quarter: 2015Q2

REPORT INFORMATION
  Report Type: Spontaneous
  Country: US (occurrence: None)
  Receive Date: 20150622
  Receipt Date: 20150622
  Transmission Date: 20150821
  Serious: No
  Sender: FDA-Public Use
  Company Number: None

PATIENT
  Age: 72 Year
  Sex: Male

DRUGS (1)
  1. NEXAVAR [Suspect]
     Active Substance: SORAFENIB
     Indication: HEPATIC CANCER
     Route: 048
     Dates: start: 20150512, end: 20150615

REACTIONS (4)
  - Blister [None]
  - Therapy cessation [None]
  - Therapy change [None]
  - Skin ulcer [None]

NARRATIVE: CASE EVENT DATE: 20150615
